FAERS Safety Report 11574068 (Version 1)
Quarter: 2015Q3

REPORT INFORMATION
  Report Type: Report from Study
  Country: JP (occurrence: JP)
  Receive Date: 20150930
  Receipt Date: 20150930
  Transmission Date: 20151125
  Serious: Yes (Other)
  Sender: FDA-Public Use
  Company Number: JP-ROCHE-1634229

PATIENT

DRUGS (2)
  1. ALTEPLASE [Suspect]
     Active Substance: ALTEPLASE
     Indication: ISCHAEMIC STROKE
     Dosage: 10% ADMINISTERED AS A BOLUS WITHIN 3 HOURS OF STROKE ONSET
     Route: 040
  2. ALTEPLASE [Suspect]
     Active Substance: ALTEPLASE
     Dosage: REMAINING DRUG OVER 1 HOUR.
     Route: 042

REACTIONS (2)
  - Cerebral haemorrhage [Unknown]
  - White matter lesion [Unknown]
